FAERS Safety Report 6529568-6 (Version None)
Quarter: 2010Q1

REPORT INFORMATION
  Report Type: 
  Country: None (occurrence: None)
  Receive Date: 20100107
  Receipt Date: 20100105
  Transmission Date: 20100710
  Serious: Yes (Death)
  Sender: FDA-Public Use
  Company Number: FR-JNJFOC-20090905201

PATIENT
  Age: 40 Year
  Sex: Female

DRUGS (2)
  1. RISPERDAL [Suspect]
     Indication: SCHIZOPHRENIA
     Route: 048
  2. LOXAPAC [Concomitant]
     Route: 065

REACTIONS (1)
  - GASTROINTESTINAL NECROSIS [None]
